FAERS Safety Report 14304003 (Version 1)
Quarter: 2017Q4

REPORT INFORMATION
  Report Type: Spontaneous
  Country: BE (occurrence: BE)
  Receive Date: 20171219
  Receipt Date: 20171219
  Transmission Date: 20180321
  Serious: Yes (Other)
  Sender: FDA-Public Use
  Company Number: BE-OTSUKA-DJ20113790

PATIENT

DRUGS (2)
  1. ABILIFY MAINTENA [Suspect]
     Active Substance: ARIPIPRAZOLE
     Dosage: 1DF=1/2 VIAL
     Route: 030
  2. OPC-14597 [Suspect]
     Active Substance: CILOSTAZOL
     Route: 030

REACTIONS (2)
  - Ammonia increased [Unknown]
  - Coma [Unknown]
